FAERS Safety Report 9660939 (Version 2)
Quarter: 2014Q1

REPORT INFORMATION
  Report Type: Spontaneous
  Country: US (occurrence: US)
  Receive Date: 20131031
  Receipt Date: 20140227
  Transmission Date: 20141002
  Serious: Yes (Death, Congenital Anomaly, Other)
  Sender: FDA-Public Use
  Company Number: US-009507513-1310USA013904

PATIENT
  Sex: 0

DRUGS (4)
  1. ISENTRESS [Suspect]
     Route: 064
  2. PREZISTA [Suspect]
     Route: 064
  3. INTELENCE [Suspect]
     Route: 064
  4. NORVIR [Suspect]
     Route: 064

REACTIONS (4)
  - Stillbirth [Fatal]
  - Thrombosis [Fatal]
  - Gastrointestinal disorder congenital [Fatal]
  - Foetal exposure during pregnancy [Recovered/Resolved]
